FAERS Safety Report 21556936 (Version 1)
Quarter: 2022Q4

REPORT INFORMATION
  Report Type: Spontaneous
  Country: IL (occurrence: IL)
  Receive Date: 20221104
  Receipt Date: 20221104
  Transmission Date: 20230113
  Serious: Yes (Other)
  Sender: FDA-Public Use
  Company Number: IL-JNJFOC-20221059711

PATIENT

DRUGS (1)
  1. AMIVANTAMAB [Suspect]
     Active Substance: AMIVANTAMAB
     Indication: Product used for unknown indication
     Dosage: DRUG INDICATION ALSO REPORTED AS ^COMMON EGFR^
     Route: 065

REACTIONS (2)
  - Anaphylactic shock [Unknown]
  - Acne [Unknown]
